FAERS Safety Report 8468813-7 (Version None)
Quarter: 2012Q2

REPORT INFORMATION
  Report Type: 
  Country: None (occurrence: None)
  Receive Date: 20120626
  Receipt Date: 20120615
  Transmission Date: 20120825
  Serious: Yes (Hospitalization, Other)
  Sender: FDA-Public Use
  Company Number: JP-VERTEX PHARMACEUTICALS INC.-AE-2012-007093

PATIENT
  Age: 64 Year
  Sex: Female

DRUGS (17)
  1. RIBAVIRIN [Concomitant]
     Route: 048
     Dates: start: 20120516
  2. TELAVIC (TELAPREVIR) [Suspect]
     Indication: HEPATITIS C
     Route: 048
     Dates: start: 20120306, end: 20120501
  3. CLARITIN REDITABS [Concomitant]
     Route: 048
  4. RIBAVIRIN [Concomitant]
     Route: 048
     Dates: start: 20120328, end: 20120410
  5. MAGLAX [Concomitant]
     Route: 048
  6. FEROTYM [Concomitant]
     Route: 048
  7. MAGLAX [Concomitant]
     Route: 048
  8. TELAVIC (TELAPREVIR) [Suspect]
     Route: 048
     Dates: start: 20120516, end: 20120530
  9. PEGINTERFERON ALFA-2B [Concomitant]
     Indication: HEPATITIS C
     Route: 051
     Dates: start: 20120306, end: 20120501
  10. OPALMON [Concomitant]
     Route: 048
  11. LIVALO [Concomitant]
     Route: 048
  12. RIBAVIRIN [Concomitant]
     Indication: HEPATITIS C
     Route: 048
     Dates: start: 20120306, end: 20120327
  13. PEGINTERFERON ALFA-2B [Concomitant]
     Route: 058
     Dates: start: 20120516
  14. VITAMIN B12 [Concomitant]
     Route: 048
  15. EPADEL S [Concomitant]
     Route: 048
  16. GOODMIN [Concomitant]
     Route: 048
  17. RIBAVIRIN [Concomitant]
     Route: 048
     Dates: start: 20120411, end: 20120501

REACTIONS (4)
  - ANAEMIA [None]
  - BACTERIAL INFECTION [None]
  - PRESYNCOPE [None]
  - PLATELET COUNT DECREASED [None]
